FAERS Safety Report 10333992 (Version 1)
Quarter: 2014Q3

REPORT INFORMATION
  Report Type: Spontaneous
  Country: US (occurrence: US)
  Receive Date: 20140723
  Receipt Date: 20140723
  Transmission Date: 20150326
  Serious: No
  Sender: FDA-Public Use
  Company Number: US-UNITED THERAPEUTICS-UTC-047078

PATIENT
  Sex: Female

DRUGS (4)
  1. SILDENAFIL [Concomitant]
     Active Substance: SILDENAFIL
  2. COUMADIN [Concomitant]
     Active Substance: WARFARIN SODIUM
  3. TRACLEER [Concomitant]
     Active Substance: BOSENTAN\BOSENTAN MONOHYDRATE
  4. REMODULIN [Suspect]
     Active Substance: TREPROSTINIL
     Dosage: 0.08488 UG/KG/MIN
     Route: 041
     Dates: start: 20130306

REACTIONS (2)
  - Injection site pruritus [Unknown]
  - Limb injury [Unknown]
